FAERS Safety Report 9193676 (Version 2)
Quarter: 2013Q2

REPORT INFORMATION
  Report Type: Spontaneous
  Country: JP (occurrence: JP)
  Receive Date: 20130327
  Receipt Date: 20130404
  Transmission Date: 20140414
  Serious: Yes (Other)
  Sender: FDA-Public Use
  Company Number: JP-GLAXOSMITHKLINE-B0878006A

PATIENT
  Age: 62 Year
  Sex: Male

DRUGS (12)
  1. VALTREX [Suspect]
     Indication: HERPES ZOSTER
     Dosage: 500MG TWICE PER DAY
     Route: 048
     Dates: start: 20130315, end: 20130322
  2. EUGLUCON [Concomitant]
     Dosage: 5MG TWICE PER DAY
     Route: 048
     Dates: start: 20130308
  3. BASEN [Concomitant]
     Dosage: .9MG THREE TIMES PER DAY
     Route: 048
     Dates: start: 20130308
  4. BAYASPIRIN [Concomitant]
     Dosage: 100MG PER DAY
     Route: 048
     Dates: start: 20130308
  5. FUROSEMIDE [Concomitant]
     Dosage: 40MG PER DAY
     Route: 048
     Dates: start: 20130308
  6. ITOROL [Concomitant]
     Dosage: 40MG TWICE PER DAY
     Route: 048
     Dates: start: 20130308
  7. SIGMART [Concomitant]
     Dosage: 10MG TWICE PER DAY
     Route: 048
     Dates: start: 20130308
  8. ARTIST [Concomitant]
     Dosage: 20MG TWICE PER DAY
     Route: 048
     Dates: start: 20130308
  9. TANKARU [Concomitant]
     Dosage: 2000MG THREE TIMES PER DAY
     Route: 048
     Dates: start: 20130308
  10. CONIEL [Concomitant]
     Dosage: 4MG PER DAY
     Route: 048
     Dates: start: 20130308
  11. DIOVAN [Concomitant]
     Dosage: 40MG PER DAY
     Route: 048
     Dates: start: 20130308
  12. PLAVIX [Concomitant]
     Dosage: 75MG PER DAY
     Route: 048
     Dates: start: 20130308

REACTIONS (5)
  - Convulsion [Not Recovered/Not Resolved]
  - Nervous system disorder [Not Recovered/Not Resolved]
  - Dizziness [Recovered/Resolved]
  - Dysarthria [Recovered/Resolved]
  - Head discomfort [Recovered/Resolved]
